FAERS Safety Report 5632209-3 (Version None)
Quarter: 2008Q1

REPORT INFORMATION
  Report Type: 
  Country: None (occurrence: None)
  Receive Date: 20080220
  Receipt Date: 20080208
  Transmission Date: 20080703
  Serious: Yes (Other)
  Sender: FDA-Public Use
  Company Number: VE-ROCHE-545316

PATIENT
  Age: 16 Year
  Sex: Female

DRUGS (1)
  1. ROACCUTAN [Suspect]
     Indication: ACNE
     Dosage: FREQUENCY NOT REPORTED.
     Route: 048
     Dates: start: 20070701, end: 20071115

REACTIONS (2)
  - NO ADVERSE EVENT [None]
  - PREGNANCY [None]
